FAERS Safety Report 7995709-7 (Version None)
Quarter: 2011Q4

REPORT INFORMATION
  Report Type: 
  Country: None (occurrence: None)
  Receive Date: 20111220
  Receipt Date: 20111215
  Transmission Date: 20120403
  Serious: Yes (Other)
  Sender: FDA-Public Use
  Company Number: US-ROCHE-803077

PATIENT
  Sex: Female
  Weight: 81.72 kg

DRUGS (1)
  1. ACCUTANE [Suspect]
     Indication: ACNE
     Dosage: INGESTED FOR ONE YEAR DURING THE 1980S
     Route: 065

REACTIONS (14)
  - SUICIDAL IDEATION [None]
  - COLITIS ULCERATIVE [None]
  - GINGIVAL BLEEDING [None]
  - STRESS [None]
  - INTESTINAL HAEMORRHAGE [None]
  - INFLAMMATORY BOWEL DISEASE [None]
  - BLOOD CHOLESTEROL INCREASED [None]
  - DEPRESSION [None]
  - PANIC ATTACK [None]
  - ANXIETY [None]
  - INTESTINAL OBSTRUCTION [None]
  - GASTROOESOPHAGEAL REFLUX DISEASE [None]
  - MENSTRUAL DISORDER [None]
  - IRRITABLE BOWEL SYNDROME [None]
